FAERS Safety Report 6904375-0 (Version None)
Quarter: 2010Q3

REPORT INFORMATION
  Report Type: 
  Country: None (occurrence: None)
  Receive Date: 20100804
  Receipt Date: 20090511
  Transmission Date: 20110219
  Serious: No
  Sender: FDA-Public Use
  Company Number: US-PFIZER INC-2009173832

PATIENT
  Sex: Female
  Weight: 88.9 kg

DRUGS (5)
  1. LYRICA [Suspect]
     Indication: FIBROMYALGIA
     Dosage: 200 MG, 2X/DAY
     Route: 048
     Dates: start: 20090203
  2. PROZAC [Concomitant]
     Dosage: UNK
  3. BACLOFEN [Concomitant]
     Dosage: UNK
  4. TRILEPTAL [Concomitant]
     Dosage: UNK
  5. INTERFERON BETA-1A [Concomitant]
     Dosage: UNK

REACTIONS (4)
  - BACK PAIN [None]
  - FIBROMYALGIA [None]
  - FLANK PAIN [None]
  - TREMOR [None]
